FAERS Safety Report 9754172 (Version 1)
Quarter: 2013Q4

REPORT INFORMATION
  Report Type: Spontaneous
  Country: US (occurrence: US)
  Receive Date: 20131213
  Receipt Date: 20131213
  Transmission Date: 20140711
  Serious: No
  Sender: FDA-Public Use
  Company Number: US-GLAXOSMITHKLINE-A1029169A

PATIENT
  Age: 65 Year
  Sex: Female
  Weight: 56.8 kg

DRUGS (3)
  1. NICORETTE NICOTINE POLACRILEX LOZENGE [Suspect]
     Dosage: 4MG FOUR TIMES PER DAY
     Route: 002
     Dates: start: 201210, end: 201306
  2. NICOTROL [Suspect]
     Route: 045
     Dates: start: 201306
  3. FLUDROCORTISONE [Concomitant]
     Indication: RHINITIS ALLERGIC
     Dosage: 4SPR IN THE MORNING

REACTIONS (7)
  - Depression [Not Recovered/Not Resolved]
  - Gastric disorder [Unknown]
  - Fatigue [Unknown]
  - Drug administration error [Unknown]
  - Nasal discomfort [Unknown]
  - Burning sensation [Unknown]
  - Sneezing [Unknown]
